FAERS Safety Report 8546188-2 (Version None)
Quarter: 2012Q3

REPORT INFORMATION
  Report Type: 
  Country: None (occurrence: None)
  Receive Date: 20120727
  Receipt Date: 20120718
  Transmission Date: 20120928
  Serious: Yes (Hospitalization)
  Sender: FDA-Public Use
  Company Number: PHHO2012GB010881

PATIENT
  Sex: Female

DRUGS (7)
  1. DICLOFENAC [Suspect]
     Indication: RHEUMATOID ARTHRITIS
     Dosage: 75 MG, BID
     Route: 048
     Dates: start: 20100712, end: 20120402
  2. SULFASALAZINE [Concomitant]
     Dosage: 500 MG, BID
     Dates: start: 20120712
  3. ALENDRONATE SODIUM [Concomitant]
     Dosage: 70 MG ONCE A WEEK
     Dates: start: 20100712
  4. FERROUS SULFATE TAB [Concomitant]
     Dosage: 200 MG, TID
     Dates: start: 20120118
  5. TRAMADOL HYDROCHLORIDE [Concomitant]
     Dosage: 500 MG, BID
     Dates: start: 20100712
  6. ACITRETIN [Concomitant]
     Dosage: 25 MG 4 TIMES A WEEK
     Dates: start: 20111220
  7. OMEPRAZOLE [Concomitant]
     Dosage: 20 MG, BID
     Dates: start: 20120118

REACTIONS (1)
  - CROHN'S DISEASE [None]
